FAERS Safety Report 5013747-3 (Version None)
Quarter: 2006Q2

REPORT INFORMATION
  Report Type: 
  Country: None (occurrence: None)
  Receive Date: 20060530
  Receipt Date: 20060224
  Transmission Date: 20061013
  Serious: Yes (Hospitalization)
  Sender: FDA-Public Use
  Company Number: JP-AVENTIS-200610618JP

PATIENT
  Age: 78 Year
  Sex: Male
  Weight: 42 kg

DRUGS (7)
  1. ALLEGRA [Suspect]
     Indication: DERMATITIS EXFOLIATIVE
     Dosage: DOSE: 2 TABLETS/DAY
     Route: 048
     Dates: start: 20060126, end: 20060204
  2. BETAMETHASONE DIPROPIONATE [Concomitant]
     Indication: DERMATITIS EXFOLIATIVE
     Dosage: DOSE: 1/2 TABLET/DAY
     Route: 048
     Dates: start: 20021203, end: 20060202
  3. BETAMETHASONE DIPROPIONATE [Concomitant]
     Dosage: DOSE: 1 TABLET/DAY
     Route: 048
     Dates: start: 20060203
  4. MARZULENE S [Concomitant]
     Indication: DERMATITIS EXFOLIATIVE
     Route: 048
  5. ANTEBATE [Concomitant]
     Indication: DERMATITIS EXFOLIATIVE
     Route: 003
     Dates: end: 20060125
  6. HIRUDOID [Concomitant]
     Indication: DERMATITIS EXFOLIATIVE
     Route: 003
     Dates: start: 20060126
  7. MYSER [Concomitant]
     Indication: DERMATITIS EXFOLIATIVE
     Route: 003
     Dates: start: 20060126

REACTIONS (6)
  - ANOREXIA [None]
  - DERMATITIS EXFOLIATIVE [None]
  - HEPATIC FUNCTION ABNORMAL [None]
  - MALAISE [None]
  - PURPURA [None]
  - RENAL IMPAIRMENT [None]
